FAERS Safety Report 19020785 (Version 1)
Quarter: 2021Q1

REPORT INFORMATION
  Report Type: Spontaneous
  Country: US (occurrence: US)
  Receive Date: 20210317
  Receipt Date: 20210317
  Transmission Date: 20210420
  Serious: Yes (Hospitalization, Other)
  Sender: FDA-Public Use
  Company Number: US-IBIGEN-2021.09995

PATIENT
  Age: 66 Year
  Sex: Male

DRUGS (3)
  1. NAFCILLIN [Suspect]
     Active Substance: NAFCILLIN SODIUM
     Indication: STAPHYLOCOCCAL INFECTION
     Dosage: 2 G EVERY FOUR HOURS (12G/DAY
     Route: 042
  2. DOXAZOSIN [Suspect]
     Active Substance: DOXAZOSIN MESYLATE
  3. ATORVASTATIN [Suspect]
     Active Substance: ATORVASTATIN

REACTIONS (13)
  - Blood bilirubin increased [Recovered/Resolved]
  - Eosinophil count increased [Recovered/Resolved]
  - Jaundice [Unknown]
  - Diverticulum [Recovered/Resolved]
  - Cholestatic liver injury [Recovered/Resolved]
  - Hepatomegaly [Unknown]
  - Cholelithiasis [Recovered/Resolved]
  - Bowel movement irregularity [Unknown]
  - Lower gastrointestinal haemorrhage [Recovered/Resolved]
  - Blood alkaline phosphatase increased [Recovered/Resolved]
  - Aspartate aminotransferase increased [Recovered/Resolved]
  - Alanine aminotransferase increased [Recovered/Resolved]
  - Drug-induced liver injury [Recovered/Resolved]
